FAERS Safety Report 8580355-7 (Version None)
Quarter: 2012Q3

REPORT INFORMATION
  Report Type: 
  Country: None (occurrence: None)
  Receive Date: 20120808
  Receipt Date: 20120803
  Transmission Date: 20120928
  Serious: Yes (Hospitalization)
  Sender: FDA-Public Use
  Company Number: AU-PFIZER INC-2012158697

PATIENT
  Age: 41 Year
  Sex: Female
  Weight: 70.1 kg

DRUGS (11)
  1. XANAX [Suspect]
     Indication: INSOMNIA
     Dosage: 0.25 MG, AS NEEDED AT NIGHT
     Route: 048
     Dates: start: 20120529, end: 20120601
  2. LEVOTHYROXINE SODIUM [Concomitant]
     Indication: HYPOTHYROIDISM
     Dosage: 50 UG, 1X/DAY
     Route: 048
     Dates: start: 20110101
  3. VYTORIN [Concomitant]
     Indication: HYPERCHOLESTEROLAEMIA
     Dosage: 10MG/40MG,1 TABLET DAILY
     Route: 048
     Dates: start: 20060101
  4. VARENICLINE TARTRATE [Suspect]
     Indication: SMOKING CESSATION THERAPY
     Dosage: UNK, 2X/DAY
     Route: 048
     Dates: start: 20120210, end: 20120626
  5. XANAX [Suspect]
  6. LEXAPRO [Concomitant]
     Indication: DEPRESSION
     Dosage: 20 MG, 1X/DAY
     Route: 048
     Dates: start: 20110101
  7. VARENICLINE TARTRATE [Suspect]
     Dosage: UNK, 2X/DAY
     Route: 048
     Dates: start: 20120210, end: 20120626
  8. PLACEBO [Suspect]
     Indication: SMOKING CESSATION THERAPY
     Dosage: UNK, 2X/DAY
     Route: 048
     Dates: start: 20120210, end: 20120626
  9. DEPO-PROVERA [Concomitant]
     Indication: CONTRACEPTION
     Dosage: UNK
     Route: 030
     Dates: start: 20110301
  10. BLINDED NO SUBJECT DRUG [Suspect]
     Indication: SMOKING CESSATION THERAPY
     Dosage: UNK, 2X/DAY
     Route: 048
     Dates: start: 20120210, end: 20120626
  11. PLACEBO [Suspect]
     Dosage: UNK, 2X/DAY
     Route: 048
     Dates: start: 20120210, end: 20120626

REACTIONS (1)
  - DEPRESSION SUICIDAL [None]
